FAERS Safety Report 9876232 (Version 1)
Quarter: 2014Q1

REPORT INFORMATION
  Report Type: Spontaneous
  Country: US (occurrence: None)
  Receive Date: 20140205
  Receipt Date: 20140205
  Transmission Date: 20141002
  Serious: Yes (Hospitalization)
  Sender: FDA-Public Use
  Company Number: None

PATIENT
  Age: 80 Year
  Sex: Female
  Weight: 90 kg

DRUGS (9)
  1. TRILEPTAL [Suspect]
     Indication: CONVULSION
     Route: 048
     Dates: start: 20130915, end: 20131129
  2. ASPIRN [Concomitant]
  3. ENALAPRIL [Concomitant]
  4. LEVOTHYROXINE [Concomitant]
  5. LOVASTATIN [Concomitant]
  6. MECLIZINE [Concomitant]
  7. PANTOPRAZOLE [Concomitant]
  8. POTASSIUM CHLORIDE [Concomitant]
  9. SITAGLIPTIN [Concomitant]

REACTIONS (1)
  - Hyponatraemia [None]
